FAERS Safety Report 24972383 (Version 1)
Quarter: 2025Q1

REPORT INFORMATION
  Report Type: Spontaneous
  Country: US (occurrence: US)
  Receive Date: 20250215
  Receipt Date: 20250215
  Transmission Date: 20250409
  Serious: No
  Sender: ALEXION PHARMACEUTICALS
  Company Number: US-GLAXOSMITHKLINE-USCH2024005306

PATIENT

DRUGS (1)
  1. NEXIUM 24HR [Suspect]
     Active Substance: ESOMEPRAZOLE MAGNESIUM

REACTIONS (1)
  - Tinnitus [Unknown]
